FAERS Safety Report 9355481 (Version 2)
Quarter: 2013Q3

REPORT INFORMATION
  Report Type: Spontaneous
  Country: FR (occurrence: FR)
  Receive Date: 20130619
  Receipt Date: 20130719
  Transmission Date: 20140515
  Serious: Yes (Other)
  Sender: FDA-Public Use
  Company Number: FR-PFIZER INC-2013180591

PATIENT
  Age: 76 Year
  Sex: Female
  Weight: 75 kg

DRUGS (9)
  1. FLUOROURACILE PFIZER [Suspect]
     Indication: LUNG ADENOCARCINOMA
     Dosage: UNK
     Route: 042
     Dates: start: 20130326
  2. FLUOROURACILE PFIZER [Suspect]
     Dosage: 600 MG, CYCLIC DURING 10 MINUTES
     Route: 040
     Dates: start: 20130409, end: 20130409
  3. FLUOROURACILE PFIZER [Suspect]
     Dosage: 2000 MG, CYCLIC DURING 45 MINUTES
     Route: 041
     Dates: start: 20130409, end: 20130409
  4. FOLINIC ACID TEVA [Suspect]
     Indication: LUNG ADENOCARCINOMA
     Dosage: UNK
     Route: 042
     Dates: start: 20130326
  5. FOLINIC ACID TEVA [Suspect]
     Dosage: 185 MG, CYCLIC DURING 2 HOURS
     Route: 041
     Dates: start: 20130409, end: 20130409
  6. OXALIPLATIN TEVA [Suspect]
     Indication: LUNG ADENOCARCINOMA
     Dosage: UNK
     Route: 042
     Dates: start: 20130326
  7. OXALIPLATIN TEVA [Suspect]
     Dosage: 140 MG, CYCLIC DURING 2 HOURS
     Route: 041
     Dates: start: 20130409, end: 20130409
  8. ZOPHREN [Concomitant]
     Indication: PREMEDICATION
     Dosage: UNK
     Dates: start: 20130409, end: 20130409
  9. SOLU-MEDROL [Concomitant]
     Indication: PREMEDICATION
     Dosage: 60 MG, UNK
     Dates: start: 20130409, end: 20130409

REACTIONS (3)
  - Laryngeal discomfort [Recovered/Resolved]
  - Diplopia [Recovered/Resolved]
  - Hypoaesthesia [Recovered/Resolved]
